FAERS Safety Report 6086658-2 (Version None)
Quarter: 2009Q1

REPORT INFORMATION
  Report Type: 
  Country: None (occurrence: None)
  Receive Date: 20090213
  Receipt Date: 20090128
  Transmission Date: 20090719
  Serious: Yes (Death)
  Sender: FDA-Public Use
  Company Number: B0557998A

PATIENT

DRUGS (2)
  1. MELPHALAN (FORMULATION UNKNOWN) (GENERIC) (MELPHALAN) [Suspect]
     Indication: AMYLOIDOSIS
     Dosage: INTRAVENOUS
     Route: 042
  2. STEM CELL TRANSPLANT (FORMULATION UNKNOWN) (STEM CELL TRANSPLANT) [Suspect]
     Indication: AMYLOIDOSIS

REACTIONS (1)
  - ARRHYTHMIA [None]
